FAERS Safety Report 9302974 (Version 2)
Quarter: 2013Q2

REPORT INFORMATION
  Report Type: Spontaneous
  Country: JP (occurrence: JP)
  Receive Date: 20130522
  Receipt Date: 20130606
  Transmission Date: 20140414
  Serious: Yes (Death)
  Sender: FDA-Public Use
  Company Number: JP-BRISTOL-MYERS SQUIBB COMPANY-17450479

PATIENT
  Age: 8 Decade
  Sex: Female

DRUGS (1)
  1. HYDREA [Suspect]
     Indication: POLYCYTHAEMIA VERA
     Route: 048

REACTIONS (2)
  - Marasmus [Fatal]
  - Anaemia megaloblastic [Not Recovered/Not Resolved]
